FAERS Safety Report 4994457-5 (Version None)
Quarter: 2006Q1

REPORT INFORMATION
  Report Type: 
  Country: None (occurrence: None)
  Receive Date: 20060313
  Receipt Date: 20060125
  Transmission Date: 20060701
  Serious: No
  Sender: FDA-Public Use
  Company Number: 2005-BP-20713BP

PATIENT
  Age: 76 Year
  Sex: Male

DRUGS (7)
  1. SPIRIVA [Suspect]
     Indication: ASTHMA
     Dosage: 18 MG (18 MCG, 1 PUFF), IH
     Route: 055
     Dates: start: 20050801
  2. SPIRIVA [Suspect]
  3. VENTOLIN [Concomitant]
  4. THEOPHYLLINE [Concomitant]
  5. SINGULAIR [Concomitant]
  6. FORADIL [Concomitant]
  7. MUCINEX (GUAIFENESIN) [Concomitant]

REACTIONS (2)
  - DRUG DISPENSING ERROR [None]
  - DYSGEUSIA [None]
